FAERS Safety Report 10149259 (Version 3)
Quarter: 2014Q2

REPORT INFORMATION
  Report Type: Spontaneous
  Country: TR (occurrence: TR)
  Receive Date: 20140502
  Receipt Date: 20140516
  Transmission Date: 20141212
  Serious: Yes (Hospitalization, Other)
  Sender: FDA-Public Use
  Company Number: TR-AMGEN INC.-TURSP2013092976

PATIENT
  Age: 39 Year
  Sex: Female

DRUGS (2)
  1. ENBREL [Suspect]
     Indication: RHEUMATOID ARTHRITIS
     Dosage: 50 MG, WEEKLY
     Route: 058
     Dates: start: 201203, end: 201401
  2. ENBREL [Suspect]
     Dosage: UNK
     Route: 065
     Dates: start: 201402, end: 2014

REACTIONS (2)
  - Apnoea [Recovered/Resolved]
  - Pneumonia [Recovered/Resolved]
